FAERS Safety Report 14020311 (Version 1)
Quarter: 2017Q3

REPORT INFORMATION
  Report Type: Spontaneous
  Country: US (occurrence: US)
  Receive Date: 20170928
  Receipt Date: 20170928
  Transmission Date: 20171128
  Serious: No
  Sender: FDA-Public Use
  Company Number: US-TEVA-748178ACC

PATIENT
  Sex: Female

DRUGS (1)
  1. CICLOPIROX 1 PERCENT [Suspect]
     Active Substance: CICLOPIROX
     Indication: PRURITUS
     Route: 061
     Dates: start: 201612

REACTIONS (3)
  - Drug ineffective [Unknown]
  - Product physical consistency issue [Unknown]
  - Pruritus [Not Recovered/Not Resolved]
